FAERS Safety Report 6284298-3 (Version None)
Quarter: 2009Q3

REPORT INFORMATION
  Report Type: 
  Country: None (occurrence: None)
  Receive Date: 20090727
  Receipt Date: 20090722
  Transmission Date: 20100115
  Serious: Yes (Death)
  Sender: FDA-Public Use
  Company Number: PHHY2009SK30588

PATIENT
  Sex: Male

DRUGS (2)
  1. GLEEVEC [Suspect]
     Dosage: UNK
     Dates: start: 20050406
  2. GLEEVEC [Suspect]
     Dosage: 300 MG, UNK
     Dates: start: 20060711

REACTIONS (5)
  - BONE MARROW FAILURE [None]
  - CARDIAC VALVE VEGETATION [None]
  - ENDOCARDITIS [None]
  - GRANULOCYTOPENIA [None]
  - PYREXIA [None]
